FAERS Safety Report 8557487-2 (Version None)
Quarter: 2012Q3

REPORT INFORMATION
  Report Type: 
  Country: None (occurrence: None)
  Receive Date: 20120725
  Receipt Date: 20120725
  Transmission Date: 20120928
  Serious: No
  Sender: FDA-Public Use
  Company Number: None

PATIENT
  Age: 69 Year
  Weight: 66.6788 kg

DRUGS (4)
  1. ATORVASTATIN [Concomitant]
  2. LIPITOR [Suspect]
     Indication: BLOOD CHOLESTEROL INCREASED
     Dosage: 10MG PILL DAILY PO
     Route: 048
     Dates: start: 20120110, end: 20120611
  3. ATORVASTATIN [Suspect]
  4. LIPITOR 1O MG [Concomitant]

REACTIONS (3)
  - PRODUCT SUBSTITUTION ISSUE [None]
  - ARTHRALGIA [None]
  - PRODUCT QUALITY ISSUE [None]
